FAERS Safety Report 5309375-2 (Version None)
Quarter: 2007Q2

REPORT INFORMATION
  Report Type: 
  Country: None (occurrence: None)
  Receive Date: 20070425
  Receipt Date: 20070425
  Transmission Date: 20071010
  Serious: No
  Sender: FDA-Public Use
  Company Number: None

PATIENT
  Age: 64 Year
  Sex: Male
  Weight: 103.2 kg

DRUGS (8)
  1. ZOLEDRONIC ACID [Suspect]
     Indication: PROSTATE CANCER METASTATIC
     Dosage: 4MG MONTHLY IV
     Route: 042
     Dates: start: 20051216, end: 20060918
  2. CITALOPRAM HYDROBROMIDE [Concomitant]
  3. GOSERELIN ACETATE [Concomitant]
  4. WARFARIN [Concomitant]
  5. RANITIDINE [Concomitant]
  6. OXYCODONE HCL [Concomitant]
  7. METHADONE HCL [Concomitant]
  8. DARBEPOETIN [Concomitant]

REACTIONS (2)
  - POST PROCEDURAL COMPLICATION [None]
  - WOUND DEHISCENCE [None]
